FAERS Safety Report 5128696-X (Version None)
Quarter: 2006Q4

REPORT INFORMATION
  Report Type: 
  Country: None (occurrence: None)
  Receive Date: 20061017
  Receipt Date: 20061006
  Transmission Date: 20070319
  Serious: Yes (Hospitalization)
  Sender: FDA-Public Use
  Company Number: CA-AVENTIS-200620482GDDC

PATIENT
  Age: 62 Year
  Sex: Female

DRUGS (10)
  1. TAXOTERE [Suspect]
     Indication: BREAST CANCER
     Route: 042
     Dates: start: 20061003, end: 20061003
  2. COLACE [Concomitant]
     Route: 048
  3. DECADRON                           /00016001/ [Concomitant]
     Indication: PREMEDICATION
     Route: 048
     Dates: start: 20061002, end: 20061003
  4. SENOKOT [Concomitant]
     Dosage: DOSE: UNK
     Route: 048
  5. DULCOLAX                           /00061602/ [Concomitant]
     Dosage: DOSE: UNK
     Route: 048
  6. ZOFRAN [Concomitant]
     Indication: PREMEDICATION
     Dosage: DOSE: 8 MG X 2 DOSES
     Route: 048
     Dates: start: 20061002, end: 20061003
  7. EXEMESTANE [Concomitant]
     Indication: AROMATASE INHIBITION THERAPY
     Route: 048
  8. FENTANYL [Concomitant]
     Route: 061
  9. BENADRYL                           /00000402/ [Concomitant]
     Indication: PREMEDICATION
     Dosage: DOSE: UNK
     Route: 042
     Dates: start: 20061002
  10. AREDIA                             /00729902/ [Concomitant]
     Route: 042
     Dates: start: 20060823, end: 20060823

REACTIONS (5)
  - BLOOD BICARBONATE DECREASED [None]
  - HEPATIC ENZYME INCREASED [None]
  - HYPERHIDROSIS [None]
  - HYPOTENSION [None]
  - LACTIC ACIDOSIS [None]
